FAERS Safety Report 10395856 (Version 6)
Quarter: 2018Q4

REPORT INFORMATION
  Report Type: Report from Study
  Country: US (occurrence: US)
  Receive Date: 20140820
  Receipt Date: 20181004
  Transmission Date: 20190204
  Serious: Yes (Hospitalization, Other)
  Sender: FDA-Public Use
  Company Number: PHEH2014US015931

PATIENT
  Age: 54 Year
  Sex: Female

DRUGS (13)
  1. TACROLIMUS. [Concomitant]
     Active Substance: TACROLIMUS
     Indication: PRODUCT USED FOR UNKNOWN INDICATION
     Dosage: 1 MG, BID
     Route: 065
  2. VALIUM [Concomitant]
     Active Substance: DIAZEPAM
     Indication: PRODUCT USED FOR UNKNOWN INDICATION
     Dosage: 0.5 MG, PRN
     Route: 065
  3. ATENOLOL. [Concomitant]
     Active Substance: ATENOLOL
     Indication: HYPERTENSION
     Dosage: 2.5 MG, PRN
     Route: 065
  4. MYFORTIC [Suspect]
     Active Substance: MYCOPHENOLATE SODIUM
     Dosage: 360 MG, UNK
     Route: 065
  5. TIROSINT [Concomitant]
     Active Substance: LEVOTHYROXINE SODIUM
     Indication: THYROID DISORDER
     Dosage: 88 UG, QD
     Route: 048
  6. MYFORTIC [Suspect]
     Active Substance: MYCOPHENOLATE SODIUM
     Indication: PANCREAS TRANSPLANT
     Dosage: 2 DF (180MG), BID
     Route: 065
     Dates: start: 20060731
  7. PROGRAF [Concomitant]
     Active Substance: TACROLIMUS\TACROLIMUS ANHYDROUS
     Indication: PRODUCT USED FOR UNKNOWN INDICATION
     Dosage: 1 MG, BID
     Route: 048
  8. ZOLPIDEM [Concomitant]
     Active Substance: ZOLPIDEM\ZOLPIDEM TARTRATE
     Indication: PRODUCT USED FOR UNKNOWN INDICATION
     Dosage: 1 DF, PRN
     Route: 048
  9. TIROSINT [Concomitant]
     Active Substance: LEVOTHYROXINE SODIUM
     Dosage: 100 MCG/ML, UNK
     Route: 065
  10. BAYER ASPIRIN [Suspect]
     Active Substance: ASPIRIN
     Indication: PRODUCT USED FOR UNKNOWN INDICATION
     Dosage: QD
     Route: 065
  11. BENADRYL [Suspect]
     Active Substance: DIPHENHYDRAMINE HYDROCHLORIDE
     Indication: PRODUCT USED FOR UNKNOWN INDICATION
     Dosage: UNK
     Route: 065
  12. AMBIEN [Concomitant]
     Active Substance: ZOLPIDEM TARTRATE
     Indication: PRODUCT USED FOR UNKNOWN INDICATION
     Dosage: 5 MG, QD (AT BED TIME, AS NEEDED
     Route: 048
  13. LORAZEPAM. [Concomitant]
     Active Substance: LORAZEPAM
     Indication: PRODUCT USED FOR UNKNOWN INDICATION
     Dosage: 0.5 MG, QD
     Route: 048

REACTIONS (38)
  - Asthma [Unknown]
  - Burning sensation [Unknown]
  - Tachycardia [Unknown]
  - Neuropathy peripheral [Unknown]
  - Stomatitis [Unknown]
  - Psychomotor hyperactivity [Unknown]
  - Incorrect dose administered [Unknown]
  - Dyspnoea [Not Recovered/Not Resolved]
  - Food allergy [Unknown]
  - Pulmonary function test decreased [Unknown]
  - Hypoglycaemia [Unknown]
  - Decreased appetite [Unknown]
  - Essential hypertension [Unknown]
  - Rash [Unknown]
  - Hypertension [Not Recovered/Not Resolved]
  - Gastrointestinal disorder [Unknown]
  - Hypoaesthesia oral [Unknown]
  - Excessive cerumen production [Unknown]
  - Thyroid cancer [Unknown]
  - Swelling face [Unknown]
  - Panic attack [Unknown]
  - Hypothyroidism [Unknown]
  - Feeding disorder [Not Recovered/Not Resolved]
  - Gallbladder disorder [Unknown]
  - Erythema [Unknown]
  - Lung disorder [Unknown]
  - Secretion discharge [Unknown]
  - Hyperlipidaemia [Unknown]
  - Starvation [Unknown]
  - Food intolerance [Recovering/Resolving]
  - Weight decreased [Unknown]
  - Herpes zoster [Unknown]
  - Product use in unapproved indication [Unknown]
  - Choking [Unknown]
  - Squamous cell carcinoma [Unknown]
  - Progressive multifocal leukoencephalopathy [Unknown]
  - Histamine intolerance [Unknown]
  - Panic disorder [Unknown]

NARRATIVE: CASE EVENT DATE: 20100929
